FAERS Safety Report 4669517-9 (Version None)
Quarter: 2005Q2

REPORT INFORMATION
  Report Type: 
  Country: None (occurrence: None)
  Receive Date: 20050523
  Receipt Date: 20050510
  Transmission Date: 20051028
  Serious: Yes (Hospitalization)
  Sender: FDA-Public Use
  Company Number: US-ROCHE-404282

PATIENT
  Age: 15 Year
  Sex: Female

DRUGS (9)
  1. MYCOPHENOLATE MOFETIL [Suspect]
     Route: 065
  2. MYCOPHENOLATE MOFETIL [Suspect]
     Route: 065
  3. MYCOPHENOLATE MOFETIL [Suspect]
     Route: 065
  4. BASILIXIMAB [Suspect]
     Route: 065
  5. TACROLIMUS [Suspect]
     Dosage: DOSAGE ADJUSTED TO MAINTAIN TROUGH LEVELS OF 12-15 NG/ML.
     Route: 065
  6. TACROLIMUS [Suspect]
     Dosage: DOSAGE DECREASED TO MAINTAIN TROUGH LEVELS OF 7-10 NG/ML.
     Route: 065
  7. TACROLIMUS [Suspect]
     Dosage: DOSAGE ADJUSTED TO TARGET SLIGHTLY HIGHER TACROLIMUS LEVELS (10-12 NG/ML).
     Route: 065
  8. PREDNISONE [Suspect]
     Route: 065
  9. PREDNISONE [Suspect]
     Route: 065

REACTIONS (8)
  - ARTHRITIS BACTERIAL [None]
  - ASTHENIA [None]
  - IMPAIRED HEALING [None]
  - LEUKOPENIA [None]
  - PANCREATITIS [None]
  - PERITONITIS [None]
  - STAPHYLOCOCCAL INFECTION [None]
  - TRANSPLANT REJECTION [None]
